FAERS Safety Report 9086240 (Version 1)
Quarter: 2013Q1

REPORT INFORMATION
  Report Type: Spontaneous
  Country: US (occurrence: US)
  Receive Date: 20130131
  Receipt Date: 20130131
  Transmission Date: 20140127
  Serious: No
  Sender: FDA-Public Use
  Company Number: GB-ASTRAZENECA-2013SE05612

PATIENT
  Age: 51 Year
  Sex: Male
  Weight: 99.8 kg

DRUGS (8)
  1. NEXIUM [Suspect]
     Indication: GASTROOESOPHAGEAL REFLUX DISEASE
     Route: 048
  2. OMEPRAZOLE [Suspect]
     Indication: GASTROOESOPHAGEAL REFLUX DISEASE
     Route: 048
  3. CRESTOR [Suspect]
     Indication: PLAQUE SHIFT
     Route: 048
  4. RAMIPRIL [Concomitant]
  5. ZANTAC [Concomitant]
  6. VIT B COMPLEX [Concomitant]
  7. VIT C [Concomitant]
  8. VIT D [Concomitant]

REACTIONS (7)
  - Low density lipoprotein increased [Unknown]
  - Throat irritation [Unknown]
  - Influenza like illness [Unknown]
  - Memory impairment [Unknown]
  - Dizziness [Unknown]
  - Off label use [Unknown]
  - Drug ineffective [Unknown]
